FAERS Safety Report 6343319-X (Version None)
Quarter: 2009Q3

REPORT INFORMATION
  Report Type: 
  Country: None (occurrence: None)
  Receive Date: 20090908
  Receipt Date: 20090828
  Transmission Date: 20100115
  Serious: Yes (Hospitalization)
  Sender: FDA-Public Use
  Company Number: PHHY2009JP13616

PATIENT
  Age: 55 Year
  Sex: Male
  Weight: 55 kg

DRUGS (5)
  1. TEGRETOL [Suspect]
     Indication: GLOSSOPHARYNGEAL NEURALGIA
     Dosage: 400 MG/DAY
     Route: 048
  2. TEGRETOL [Suspect]
     Dosage: 800 MG/DAY
     Route: 048
  3. TRYPTANOL [Concomitant]
     Indication: GLOSSOPHARYNGEAL NEURALGIA
  4. LOXONIN [Concomitant]
     Indication: GLOSSOPHARYNGEAL NEURALGIA
  5. ASPIZONE [Concomitant]
     Indication: GLOSSOPHARYNGEAL NEURALGIA

REACTIONS (12)
  - COMMUNICATION DISORDER [None]
  - DRUG INEFFECTIVE [None]
  - DRUG LEVEL INCREASED [None]
  - DRUG RASH WITH EOSINOPHILIA AND SYSTEMIC SYMPTOMS [None]
  - DYSPHAGIA [None]
  - GLOSSOPHARYNGEAL NEURALGIA [None]
  - INFLAMMATION [None]
  - PERIPHERAL NERVE DECOMPRESSION [None]
  - PLATELET COUNT DECREASED [None]
  - PYREXIA [None]
  - RASH PAPULAR [None]
  - WHITE BLOOD CELL COUNT DECREASED [None]
